FAERS Safety Report 5840137-3 (Version None)
Quarter: 2008Q3

REPORT INFORMATION
  Report Type: 
  Country: None (occurrence: None)
  Receive Date: 20080807
  Receipt Date: 20080807
  Transmission Date: 20090109
  Serious: Yes (Other)
  Sender: FDA-Public Use
  Company Number: None

PATIENT
  Age: 49 Year
  Sex: Male
  Weight: 77.1115 kg

DRUGS (1)
  1. PREDNISONE TAB [Suspect]
     Indication: VASCULITIS
     Dosage: 40 MG DAILY
     Dates: start: 20080201

REACTIONS (1)
  - CATARACT [None]
